FAERS Safety Report 8347552-7 (Version None)
Quarter: 2012Q2

REPORT INFORMATION
  Report Type: 
  Country: None (occurrence: None)
  Receive Date: 20120509
  Receipt Date: 20120507
  Transmission Date: 20120825
  Serious: Yes (Other)
  Sender: FDA-Public Use
  Company Number: US-ROCHE-1015154

PATIENT
  Sex: Male
  Weight: 99.426 kg

DRUGS (1)
  1. ZELBORAF [Suspect]
     Indication: MALIGNANT MELANOMA
     Route: 048
     Dates: start: 20110926

REACTIONS (2)
  - BURNS THIRD DEGREE [None]
  - PHOTOSENSITIVITY REACTION [None]
